FAERS Safety Report 7831115-3 (Version None)
Quarter: 2011Q4

REPORT INFORMATION
  Report Type: 
  Country: None (occurrence: None)
  Receive Date: 20111021
  Receipt Date: 20111014
  Transmission Date: 20120403
  Serious: Yes (Death)
  Sender: FDA-Public Use
  Company Number: IT-CELGENEUS-083-50794-11101737

PATIENT
  Sex: Male

DRUGS (7)
  1. HYPOGLYCEMIZING THERAPY [Concomitant]
     Route: 065
  2. VIDAZA [Suspect]
     Dosage: 120 MILLIGRAM
     Route: 065
     Dates: start: 20110829, end: 20110906
  3. PURINETHOL [Concomitant]
     Route: 065
  4. NITRODERIVED PATCHES [Concomitant]
     Route: 065
  5. VIDAZA [Suspect]
  6. THIOGUANINE [Concomitant]
     Dosage: 1 TABLET
     Route: 065
  7. AISOSKIN [Concomitant]
     Dosage: 20 MILLIGRAM
     Route: 065

REACTIONS (2)
  - LUNG CANCER METASTATIC [None]
  - PANCYTOPENIA [None]
